FAERS Safety Report 5472736-5 (Version None)
Quarter: 2007Q4

REPORT INFORMATION
  Report Type: 
  Country: None (occurrence: None)
  Receive Date: 20071001
  Receipt Date: 20070129
  Transmission Date: 20080405
  Serious: No
  Sender: FDA-Public Use
  Company Number: US-ASTRAZENECA-2006UW20924

PATIENT
  Age: 72 Year
  Sex: Female
  Weight: 91.2 kg

DRUGS (6)
  1. ARIMIDEX [Suspect]
     Indication: PROPHYLAXIS
     Route: 048
     Dates: start: 20060501
  2. LEXAPRO [Concomitant]
  3. DETROL LA [Concomitant]
  4. VITAMINS [Concomitant]
  5. DICLOFENAC [Concomitant]
     Indication: BACK PAIN
  6. CHLORZOXAZONE [Concomitant]
     Indication: MUSCLE SPASMS

REACTIONS (6)
  - ALOPECIA [None]
  - ANOREXIA [None]
  - CRYING [None]
  - DEPRESSION [None]
  - FOOD CRAVING [None]
  - WEIGHT INCREASED [None]
